FAERS Safety Report 7949022 (Version 4)
Quarter: 2013Q2

REPORT INFORMATION
  Report Type: Report from Study
  Country: US (occurrence: US)
  Receive Date: 20110517
  Receipt Date: 20130404
  Transmission Date: 20140414
  Serious: Yes (Congenital Anomaly)
  Sender: FDA-Public Use
  Company Number: US-UCBSA-030679

PATIENT
  Age: 12 Month
  Sex: Female

DRUGS (10)
  1. KEPPRA [Suspect]
     Route: 064
     Dates: end: 20110223
  2. PNEUMOCOCCAL CONJUGATE VACCINE [Concomitant]
     Dates: start: 20100427, end: 20100427
  3. PNEUMOCOCCAL CONJUGATE VACCINE [Concomitant]
     Dates: start: 20100623, end: 20100623
  4. PNEUMOCOCCAL CONJUGATE VACCINE [Concomitant]
     Dates: start: 20100823, end: 20100823
  5. PNEUMOCOCCAL CONJUGATE VACCINE [Concomitant]
     Dates: start: 20110223
  6. VARICELLA VACCINE [Concomitant]
     Dates: start: 20110223
  7. FOLIC ACID [Concomitant]
     Route: 064
     Dates: end: 20110223
  8. LAMICTAL [Concomitant]
     Route: 064
     Dates: end: 20110223
  9. LAMICTAL [Concomitant]
     Route: 064
     Dates: end: 200904
  10. PRENATAL VITAMIN [Concomitant]
     Dosage: 1 TABLET DAILY
     Route: 064
     Dates: end: 20110223

REACTIONS (5)
  - Eyelid ptosis congenital [Unknown]
  - Foot deformity [Unknown]
  - Eczema [Unknown]
  - Otitis media [Recovered/Resolved]
  - Foetal exposure during pregnancy [Unknown]
